FAERS Safety Report 5523529-1 (Version None)
Quarter: 2007Q4

REPORT INFORMATION
  Report Type: 
  Country: None (occurrence: None)
  Receive Date: 20071121
  Receipt Date: 20071116
  Transmission Date: 20080405
  Serious: Yes (Other)
  Sender: FDA-Public Use
  Company Number: DE-JNJFOC-20071004073

PATIENT
  Age: 40 Year
  Sex: Female

DRUGS (1)
  1. INVEGA [Suspect]
     Indication: PSYCHOTIC DISORDER
     Route: 048

REACTIONS (5)
  - ARRHYTHMIA [None]
  - CHEST DISCOMFORT [None]
  - CHEST PAIN [None]
  - PALPITATIONS [None]
  - TACHYCARDIA [None]
